FAERS Safety Report 4391171-4 (Version None)
Quarter: 2004Q2

REPORT INFORMATION
  Report Type: 
  Country: None (occurrence: None)
  Receive Date: 20040621
  Receipt Date: 20031201
  Transmission Date: 20050107
  Serious: Yes (Death)
  Sender: FDA-Public Use
  Company Number: USA-2003-0011574

PATIENT
  Age: 30 Year
  Sex: Male
  Weight: 82.5 kg

DRUGS (8)
  1. OXYCONTIN TABLETS (OCYCODONE HYDROCHLORIDE) [Suspect]
  2. HYDROCODONE BITARTRATE [Suspect]
  3. TOPAMAX [Suspect]
  4. PSEUDOEPHEDRINE HCL [Suspect]
  5. EPHEDRINE (EPHEDRINE) [Suspect]
  6. ACETAMINOPHEN [Suspect]
  7. ETHANOL (ETHANOL) [Suspect]
  8. NICOTINE [Suspect]

REACTIONS (1)
  - INTENTIONAL OVERDOSE [None]
